FAERS Safety Report 11385321 (Version 1)
Quarter: 2015Q3

REPORT INFORMATION
  Report Type: Spontaneous
  Country: US (occurrence: US)
  Receive Date: 20150811
  Receipt Date: 20150811
  Transmission Date: 20151125
  Serious: No
  Sender: FDA-Public Use
  Company Number: US-ELI_LILLY_AND_COMPANY-US201202006845

PATIENT
  Sex: Male

DRUGS (2)
  1. CYMBALTA [Suspect]
     Active Substance: DULOXETINE HYDROCHLORIDE
     Indication: PRE-EXISTING DISEASE
     Dosage: UNK
  2. AXIRON [Suspect]
     Active Substance: TESTOSTERONE
     Indication: PRIMARY HYPOGONADISM
     Dosage: UNK
     Dates: start: 201111

REACTIONS (1)
  - Cluster headache [Not Recovered/Not Resolved]
